FAERS Safety Report 16819181 (Version 2)
Quarter: 2019Q4

REPORT INFORMATION
  Report Type: Spontaneous
  Country: US (occurrence: US)
  Receive Date: 20190917
  Receipt Date: 20191003
  Transmission Date: 20200122
  Serious: Yes (Hospitalization, Other)
  Sender: FDA-Public Use
  Company Number: US-HORIZON-PEN-0831-2019

PATIENT
  Age: 41 Year
  Sex: Male

DRUGS (1)
  1. PENNSAID [Suspect]
     Active Substance: DICLOFENAC SODIUM
     Indication: PROCEDURAL PAIN
     Dosage: 1/2 SAMPLE PACK-2 PUMPS BID
     Dates: start: 201907

REACTIONS (8)
  - Off label use [Unknown]
  - Rash macular [Unknown]
  - Application site vesicles [Unknown]
  - Condition aggravated [Unknown]
  - Rash [Unknown]
  - Arthralgia [Unknown]
  - Infection [Unknown]
  - Application site rash [Unknown]

NARRATIVE: CASE EVENT DATE: 201909
